FAERS Safety Report 7450689-8 (Version None)
Quarter: 2011Q2

REPORT INFORMATION
  Report Type: 
  Country: None (occurrence: None)
  Receive Date: 20110502
  Receipt Date: 20110421
  Transmission Date: 20111010
  Serious: Yes (Death, Hospitalization, Other)
  Sender: FDA-Public Use
  Company Number: US-BAXTER-2011BH012347

PATIENT
  Sex: Female

DRUGS (1)
  1. DIANEAL [Suspect]
     Indication: PERITONEAL DIALYSIS
     Route: 033
     Dates: start: 20050101, end: 20110403

REACTIONS (4)
  - RENAL FAILURE [None]
  - REFUSAL OF TREATMENT BY PATIENT [None]
  - DEMENTIA ALZHEIMER'S TYPE [None]
  - DISABILITY [None]
